FAERS Safety Report 15958556 (Version 2)
Quarter: 2020Q1

REPORT INFORMATION
  Report Type: Spontaneous
  Country: US (occurrence: US)
  Receive Date: 20190213
  Receipt Date: 20200211
  Transmission Date: 20200409
  Serious: No
  Sender: FDA-Public Use
  Company Number: US-PURDUE-USA-2018-0144959

PATIENT
  Sex: Female

DRUGS (6)
  1. PERCOCET                           /00446701/ [Suspect]
     Active Substance: ACETAMINOPHEN\OXYCODONE HYDROCHLORIDE\OXYCODONE TEREPHTHALATE
     Indication: PAIN
     Dosage: 10/325MG, DAILY
     Route: 048
     Dates: start: 201809
  2. BUTRANS [Suspect]
     Active Substance: BUPRENORPHINE
     Dosage: 15 MCG/HR, WEEKLY
     Route: 062
     Dates: start: 201709
  3. SENOKOT [Concomitant]
     Active Substance: SENNOSIDES
     Indication: PRODUCT USED FOR UNKNOWN INDICATION
     Route: 048
  4. BUTRANS [Suspect]
     Active Substance: BUPRENORPHINE
     Indication: MUSCLE INJURY
     Dosage: UNK
     Route: 062
  5. KLONOPIN [Concomitant]
     Active Substance: CLONAZEPAM
     Indication: ANXIETY
     Dosage: 1 MG, DAILY
     Route: 048
  6. BUTRANS [Suspect]
     Active Substance: BUPRENORPHINE
     Dosage: 20 MCG/HR, WEEKLY
     Route: 062

REACTIONS (6)
  - Loss of personal independence in daily activities [Recovered/Resolved]
  - Drug withdrawal syndrome [Recovered/Resolved]
  - Fungal infection [Unknown]
  - Frequent bowel movements [Unknown]
  - Product adhesion issue [Unknown]
  - Stomatitis [Unknown]
